FAERS Safety Report 5772267-9 (Version None)
Quarter: 2008Q2

REPORT INFORMATION
  Report Type: 
  Country: None (occurrence: None)
  Receive Date: 20080613
  Receipt Date: 20080602
  Transmission Date: 20081010
  Serious: Yes (Hospitalization)
  Sender: FDA-Public Use
  Company Number: PHHY2008FR09714

PATIENT
  Sex: Female

DRUGS (2)
  1. NEORAL [Suspect]
     Indication: AUTOIMMUNE HEPATITIS
     Dosage: 60 MG, BID
     Route: 048
     Dates: start: 20080304
  2. CORTANCYL [Concomitant]
     Dosage: 40 MG, QD
     Route: 048
     Dates: start: 20071011

REACTIONS (3)
  - ALLODYNIA [None]
  - ASTHENIA [None]
  - PAIN [None]
